FAERS Safety Report 5470845-8 (Version None)
Quarter: 2007Q3

REPORT INFORMATION
  Report Type: 
  Country: None (occurrence: None)
  Receive Date: 20070925
  Receipt Date: 20070814
  Transmission Date: 20080115
  Serious: Yes (Hospitalization)
  Sender: FDA-Public Use
  Company Number: 6038057

PATIENT
  Age: 81 Year
  Sex: Male

DRUGS (9)
  1. SERTRALINE [Suspect]
     Indication: DRUG USE FOR UNKNOWN INDICATION
     Dosage: 50 MG (50 MG, 1 IN 1 D)
     Dates: start: 19910509
  2. AMILORIDE HCL [Concomitant]
  3. AMITRIPTYLINE HCL [Concomitant]
  4. FUROSEMIDE [Concomitant]
  5. IPRATROPIUM BROMIDE [Concomitant]
  6. ISOSORBIDE (ISOSORBIDE) [Concomitant]
  7. LITHIUM CARBONATE [Concomitant]
  8. SALBUTAMOL (SALBUTAMOL) [Concomitant]
  9. THIORIDAZINE HCL [Concomitant]

REACTIONS (2)
  - HAEMATEMESIS [None]
  - LIVER DISORDER [None]
